FAERS Safety Report 21039837 (Version 2)
Quarter: 2022Q3

REPORT INFORMATION
  Report Type: Spontaneous
  Country: NZ (occurrence: NZ)
  Receive Date: 20220704
  Receipt Date: 20220728
  Transmission Date: 20221026
  Serious: Yes (Other)
  Sender: FDA-Public Use
  Company Number: NZ-PFIZER INC-202200913555

PATIENT
  Sex: Male

DRUGS (1)
  1. ACCURETIC [Suspect]
     Active Substance: HYDROCHLOROTHIAZIDE\QUINAPRIL HYDROCHLORIDE
     Indication: Hypertension
     Dosage: UNK

REACTIONS (10)
  - Lip and/or oral cavity cancer [Recovered/Resolved]
  - Squamous cell carcinoma [Recovered/Resolved]
  - Erectile dysfunction [Unknown]
  - Stomatitis [Unknown]
  - Dry mouth [Unknown]
  - Mouth ulceration [Unknown]
  - Malaise [Unknown]
  - Feeling abnormal [Unknown]
  - Inflammation [Unknown]
  - Dry skin [Unknown]
